FAERS Safety Report 10070560 (Version 1)
Quarter: 2014Q2

REPORT INFORMATION
  Report Type: Spontaneous
  Country: GB (occurrence: GB)
  Receive Date: 20140410
  Receipt Date: 20140410
  Transmission Date: 20141212
  Serious: Yes (Other)
  Sender: FDA-Public Use
  Company Number: GB-PFIZER INC-2014098964

PATIENT
  Sex: 0

DRUGS (5)
  1. LYRICA [Suspect]
     Indication: RESTLESS LEGS SYNDROME
     Dosage: 150 DF, UNK 300 DF EVERY NIGHT AT BED TIME
     Route: 048
     Dates: start: 20130819
  2. SINEMET [Suspect]
     Dosage: UNK
     Route: 048
  3. ATORVASTATIN [Concomitant]
     Dosage: UNK
  4. BUPROPION HYDROCHLORIDE [Concomitant]
  5. HYDROXYZINE HYDROCHLORIDE [Concomitant]
     Dosage: UNK

REACTIONS (5)
  - Off label use [Unknown]
  - Neoplasm malignant [Unknown]
  - Pain [Unknown]
  - Drug hypersensitivity [Unknown]
  - Insomnia [Unknown]
